FAERS Safety Report 10041479 (Version 1)
Quarter: 2014Q1

REPORT INFORMATION
  Report Type: Report from Study
  Country: TR (occurrence: TR)
  Receive Date: 20140327
  Receipt Date: 20140327
  Transmission Date: 20141002
  Serious: Yes (Hospitalization)
  Sender: FDA-Public Use
  Company Number: TR-US-EMD SERONO, INC.-7277306

PATIENT
  Sex: Male
  Weight: 90 kg

DRUGS (5)
  1. REBIF [Suspect]
     Indication: MULTIPLE SCLEROSIS
  2. LIORESAL [Suspect]
     Indication: NEURALGIA
  3. DEPAKIN [Suspect]
     Indication: MUSCLE CONTRACTIONS INVOLUNTARY
  4. PAROL [Suspect]
     Indication: ANALGESIC THERAPY
  5. PAROL [Suspect]
     Indication: PYREXIA

REACTIONS (3)
  - Multiple sclerosis relapse [Not Recovered/Not Resolved]
  - Muscle contractions involuntary [Not Recovered/Not Resolved]
  - Back pain [Not Recovered/Not Resolved]
